FAERS Safety Report 7487650-3 (Version None)
Quarter: 2011Q2

REPORT INFORMATION
  Report Type: 
  Country: None (occurrence: None)
  Receive Date: 20110518
  Receipt Date: 20091120
  Transmission Date: 20111010
  Serious: Yes (Death, Hospitalization, Other)
  Sender: FDA-Public Use
  Company Number: US-BAYER-200940045NA

PATIENT
  Age: 75 Year
  Sex: Female
  Weight: 63.492 kg

DRUGS (27)
  1. IMDUR [Concomitant]
     Dosage: 60 MG, QD
  2. FENTANYL [Concomitant]
     Dosage: UNK
     Dates: start: 20020301
  3. VERSED [Concomitant]
     Dosage: UNK
     Dates: start: 20020301
  4. MAGNESIUM SULFATE [Concomitant]
     Dosage: UNK
     Dates: start: 20020301
  5. PROTAMINE SULFATE [Suspect]
     Dosage: UNK
     Dates: start: 20020301
  6. AEROBID [Concomitant]
     Dosage: 2 PUFFS BID
  7. CALCIUM CHLORIDE [Concomitant]
     Dosage: UNK
     Dates: start: 20020301
  8. SUCCINYLCHOLINE CHLORIDE [Concomitant]
     Dosage: UNK
     Dates: start: 20020301
  9. OPTIRAY 300 [Concomitant]
     Dosage: 150 ML, UNK
     Route: 042
     Dates: start: 20020225, end: 20020225
  10. LANOXIN [Concomitant]
     Dosage: 0.25 MG, QD
  11. ISOFLURANE [Concomitant]
     Dosage: UNK
     Dates: start: 20020301
  12. POTASSIUM CHLORIDE [Concomitant]
     Dosage: UNK
     Dates: start: 20020301
  13. RED BLOOD CELLS [Concomitant]
     Dosage: UNK
     Dates: start: 20020301
  14. HEPARIN [Concomitant]
     Dosage: UNK
     Dates: start: 20020301
  15. QUINIDINE [Concomitant]
     Dosage: 0.1 MG, QD
  16. HEPARIN [Concomitant]
     Dosage: 700 UNITS/HR
     Route: 042
  17. SODIUM BICARBONATE [Concomitant]
     Dosage: UNK
     Dates: start: 20020301
  18. ADENOSINE [Concomitant]
     Dosage: UNK
     Dates: start: 20020301
  19. NITROGLYCERIN [Concomitant]
     Dosage: 15 MCG/MIN
     Route: 042
  20. COUMADIN [Concomitant]
     Dosage: 2.5 MG, QD
  21. IRON SULFATETHIAMIN COMPOUND TAB [Concomitant]
  22. PAVULON [Concomitant]
     Dosage: UNK
     Dates: start: 20020301
  23. MANNITOL [Concomitant]
     Dosage: UNK
     Dates: start: 20020301
  24. TRASYLOL [Suspect]
     Indication: CORONARY ARTERY BYPASS
     Dosage: UNK
     Route: 042
  25. ANECTINE [Concomitant]
     Dosage: UNK
     Dates: start: 20020301
  26. VANCOMYCIN [Concomitant]
     Dosage: 1 G, UNK
     Dates: start: 20020301
  27. AMICAR [Concomitant]
     Dosage: 1 GM/HR
     Dates: start: 20020301

REACTIONS (10)
  - DEPRESSION [None]
  - ANXIETY [None]
  - FEAR [None]
  - DEATH [None]
  - PAIN [None]
  - RENAL IMPAIRMENT [None]
  - UNEVALUABLE EVENT [None]
  - RENAL FAILURE [None]
  - INJURY [None]
  - ANHEDONIA [None]
